FAERS Safety Report 11661333 (Version 1)
Quarter: 2015Q4

REPORT INFORMATION
  Report Type: Spontaneous
  Country: MY (occurrence: MY)
  Receive Date: 20151026
  Receipt Date: 20151026
  Transmission Date: 20160304
  Serious: Yes (Death)
  Sender: FDA-Public Use
  Company Number: MY-BD RX INC-2015BDR00624

PATIENT
  Age: 35 Year
  Sex: Female

DRUGS (5)
  1. BLOOD TRANSFUSION [Concomitant]
     Active Substance: WHOLE BLOOD
     Dosage: 26 U PACKED RED BLOOD CELLS, 45 U FRESH FROZEN PLASMA, 16 U PLATELETS, 30 U CRYOPRECIPITATE
  2. CYCLOSPORINE A [Suspect]
     Active Substance: CYCLOSPORINE
     Dosage: 75 MG, 2X/DAY
     Route: 048
  3. DEXAMETHASONE SODIUM PHOSPHATE. [Suspect]
     Active Substance: DEXAMETHASONE SODIUM PHOSPHATE
     Indication: HISTIOCYTOSIS HAEMATOPHAGIC
     Dosage: 10 MG, 1X/DAY
     Route: 042
  4. DEXAMETHASONE SODIUM PHOSPHATE. [Suspect]
     Active Substance: DEXAMETHASONE SODIUM PHOSPHATE
     Indication: HELLP SYNDROME
     Dosage: 16 MG, 1X/DAY
     Route: 042
  5. CYCLOSPORINE A [Suspect]
     Active Substance: CYCLOSPORINE
     Indication: HISTIOCYTOSIS HAEMATOPHAGIC
     Dosage: 75 MG, 2X/DAY
     Route: 042

REACTIONS (18)
  - Cytomegalovirus infection [Fatal]
  - Rectal ulcer haemorrhage [None]
  - Cystitis haemorrhagic [None]
  - Acinetobacter infection [Fatal]
  - Posterior reversible encephalopathy syndrome [None]
  - Haemoptysis [None]
  - Condition aggravated [None]
  - Septic shock [Fatal]
  - Microangiopathic haemolytic anaemia [None]
  - Thrombocytopenic purpura [None]
  - Pneumonia cytomegaloviral [None]
  - Multi-organ failure [Fatal]
  - Leukoencephalopathy [Fatal]
  - Transfusion-related acute lung injury [None]
  - Pneumonia klebsiella [Fatal]
  - Multiple-drug resistance [None]
  - Lymphopenia [Fatal]
  - Histiocytosis haematophagic [None]
